FAERS Safety Report 5295269-8 (Version None)
Quarter: 2007Q2

REPORT INFORMATION
  Report Type: 
  Country: None (occurrence: None)
  Receive Date: 20070412
  Receipt Date: 20070330
  Transmission Date: 20071010
  Serious: Yes (Hospitalization)
  Sender: FDA-Public Use
  Company Number: US-ELI_LILLY_AND_COMPANY-US200702001375

PATIENT
  Age: 18 Year
  Sex: Female

DRUGS (3)
  1. CYMBALTA [Suspect]
  2. TOPAMAX [Concomitant]
  3. ZOLOFT [Concomitant]

REACTIONS (2)
  - ANAEMIA [None]
  - SYSTEMIC LUPUS ERYTHEMATOSUS [None]
